FAERS Safety Report 8829188 (Version 1)
Quarter: 2012Q4

REPORT INFORMATION
  Report Type: 
  Country: FR (occurrence: FR)
  Receive Date: 20121008
  Receipt Date: 20121008
  Transmission Date: 20130627
  Serious: Yes (Hospitalization, Other)
  Sender: FDA-Public Use
  Company Number: PHHY2012FR087735

PATIENT
  Age: 80 Year
  Sex: Female

DRUGS (7)
  1. EXELON PATCH [Suspect]
     Dosage: 4.6 mg/24 h
     Route: 062
     Dates: start: 201101, end: 20120718
  2. TEMERIT [Concomitant]
     Dosage: 5 mg, UNK
     Route: 048
     Dates: start: 20100726
  3. KARDEGIC [Concomitant]
  4. TRINIPATCH [Concomitant]
  5. LEXOMIL [Concomitant]
  6. FLODIL [Concomitant]
  7. LIPANTHYL [Concomitant]

REACTIONS (8)
  - Ischaemic cardiomyopathy [Unknown]
  - Dilatation ventricular [Unknown]
  - Ejection fraction decreased [Unknown]
  - Malaise [Unknown]
  - Atrioventricular block second degree [Not Recovered/Not Resolved]
  - Renal failure [Unknown]
  - Dehydration [Unknown]
  - Hypernatraemia [Unknown]
